FAERS Safety Report 8822873 (Version 2)
Quarter: 2015Q3

REPORT INFORMATION
  Report Type: Report from Study
  Country: US (occurrence: US)
  Receive Date: 20121003
  Receipt Date: 20150806
  Transmission Date: 20151125
  Serious: Yes (Death)
  Sender: FDA-Public Use
  Company Number: US-ROCHE-1130767

PATIENT
  Sex: Female

DRUGS (11)
  1. BENADRYL [Concomitant]
     Active Substance: DIPHENHYDRAMINE HYDROCHLORIDE
  2. LEUKINE [Concomitant]
     Active Substance: SARGRAMOSTIM
  3. TYLENOL [Concomitant]
     Active Substance: ACETAMINOPHEN
  4. ALLOPURINOL. [Concomitant]
     Active Substance: ALLOPURINOL
     Route: 065
  5. AREDIA [Concomitant]
     Active Substance: PAMIDRONATE DISODIUM
  6. RITUXAN [Suspect]
     Active Substance: RITUXIMAB
     Indication: CHRONIC LYMPHOCYTIC LEUKAEMIA
     Route: 042
     Dates: start: 20010926
  7. RITUXAN [Suspect]
     Active Substance: RITUXIMAB
     Route: 042
  8. LASIX [Concomitant]
     Active Substance: FUROSEMIDE
     Route: 048
  9. ZOFRAN [Concomitant]
     Active Substance: ONDANSETRON HYDROCHLORIDE
  10. CYTOXAN [Concomitant]
     Active Substance: CYCLOPHOSPHAMIDE
     Route: 048
  11. ALEVE [Concomitant]
     Active Substance: NAPROXEN SODIUM

REACTIONS (9)
  - Death [Fatal]
  - Oedema peripheral [Unknown]
  - Decreased appetite [Unknown]
  - Abdominal distension [Unknown]
  - Hepatic lesion [Unknown]
  - Pain [Unknown]
  - Abdominal tenderness [Unknown]
  - Fatigue [Unknown]
  - Somnolence [Unknown]
